FAERS Safety Report 5385631-7 (Version None)
Quarter: 2007Q3

REPORT INFORMATION
  Report Type: 
  Country: None (occurrence: None)
  Receive Date: 20070712
  Receipt Date: 20070709
  Transmission Date: 20080115
  Serious: Yes (Other)
  Sender: FDA-Public Use
  Company Number: A0661278A

PATIENT
  Age: 53 Year
  Sex: Male

DRUGS (3)
  1. ALLI [Suspect]
     Route: 065
     Dates: start: 20070623
  2. LIPITOR [Concomitant]
  3. ATENOLOL [Concomitant]

REACTIONS (5)
  - ASTHENIA [None]
  - DIARRHOEA [None]
  - DIZZINESS [None]
  - FAECAL INCONTINENCE [None]
  - FLATULENCE [None]
